FAERS Safety Report 14800902 (Version 2)
Quarter: 2018Q2

REPORT INFORMATION
  Report Type: Report from Study
  Country: KR (occurrence: KR)
  Receive Date: 20180424
  Receipt Date: 20180425
  Transmission Date: 20180711
  Serious: Yes (Hospitalization)
  Sender: FDA-Public Use
  Company Number: KR-B.I. PHARMACEUTICALS,INC./RIDGEFIELD-2018-BI-021086

PATIENT
  Age: 72 Year
  Sex: Male
  Weight: 60.3 kg

DRUGS (22)
  1. TARGIN [Concomitant]
     Active Substance: NALOXONE HYDROCHLORIDE\OXYCODONE HYDROCHLORIDE
     Indication: PROPHYLAXIS
     Route: 065
     Dates: start: 20171128, end: 20180220
  2. TRAMADOL HCL [Concomitant]
     Active Substance: TRAMADOL HYDROCHLORIDE
     Dosage: DOSAGE FORM: AMPLE
     Route: 065
     Dates: start: 20180209, end: 20180211
  3. CODEINE PHOSPHATE [Concomitant]
     Active Substance: CODEINE PHOSPHATE
     Indication: PROPHYLAXIS
     Route: 065
     Dates: start: 20170920, end: 20180101
  4. MECKOOL [Concomitant]
     Indication: PROPHYLAXIS OF NAUSEA AND VOMITING
     Dosage: DAILY DOSE: 1 AMPLE
     Route: 065
     Dates: start: 20180102, end: 20180104
  5. BEAROBAN [Concomitant]
     Indication: RASH
     Route: 065
     Dates: start: 20180106, end: 2018
  6. GILOTRIF [Suspect]
     Active Substance: AFATINIB
     Route: 048
     Dates: start: 20170712, end: 20171223
  7. GILOTRIF [Suspect]
     Active Substance: AFATINIB
     Route: 048
     Dates: start: 20180106, end: 20180209
  8. TARGIN [Concomitant]
     Active Substance: NALOXONE HYDROCHLORIDE\OXYCODONE HYDROCHLORIDE
     Indication: CANCER PAIN
  9. ALLEGRA [Concomitant]
     Active Substance: FEXOFENADINE HYDROCHLORIDE
     Indication: PROPHYLAXIS
     Route: 065
     Dates: start: 20170712, end: 20180123
  10. GILOTRIF [Suspect]
     Active Substance: AFATINIB
     Indication: NON-SMALL CELL LUNG CANCER
     Route: 048
     Dates: start: 20170524, end: 20170711
  11. FENTORA [Concomitant]
     Active Substance: FENTANYL CITRATE
     Indication: PROPHYLAXIS
     Route: 002
     Dates: start: 20171128, end: 20180101
  12. TRAMADOL HCL [Concomitant]
     Active Substance: TRAMADOL HYDROCHLORIDE
     Indication: PROPHYLAXIS
     Dosage: DOSAGE FORM: AMPLE
     Route: 065
     Dates: start: 20171128, end: 20171221
  13. FENTORA [Concomitant]
     Active Substance: FENTANYL CITRATE
     Indication: CANCER PAIN
  14. CODEINE PHOSPHATE [Concomitant]
     Active Substance: CODEINE PHOSPHATE
     Indication: COUGH
  15. LAMINA-G [Concomitant]
     Indication: GASTRITIS PROPHYLAXIS
     Dosage: FORMULATION: PACK
     Route: 065
     Dates: start: 20171222, end: 20180101
  16. ALLEGRA [Concomitant]
     Active Substance: FEXOFENADINE HYDROCHLORIDE
     Indication: COUGH
  17. GADIN [Concomitant]
     Indication: GASTRITIS
  18. TRAMADOL HCL [Concomitant]
     Active Substance: TRAMADOL HYDROCHLORIDE
     Indication: CANCER PAIN
     Route: 065
     Dates: start: 20171226, end: 20180101
  19. LANSTON [Concomitant]
     Active Substance: LANSOPRAZOLE
     Indication: GASTRITIS PROPHYLAXIS
     Route: 065
     Dates: start: 20171224
  20. FOLIC ACID. [Concomitant]
     Active Substance: FOLIC ACID
     Indication: VITAMIN SUPPLEMENTATION
     Route: 065
     Dates: start: 20170314
  21. MECKOOL [Concomitant]
     Dosage: DAILY DOSE: 1 AMPLE
     Route: 065
     Dates: start: 20180209, end: 20180209
  22. GADIN [Concomitant]
     Indication: PROPHYLAXIS
     Dosage: DAILY DOSE: 1 AMPLE
     Route: 065
     Dates: start: 20180209, end: 20180209

REACTIONS (2)
  - Pleural effusion [Not Recovered/Not Resolved]
  - Gastric ulcer [Recovered/Resolved]

NARRATIVE: CASE EVENT DATE: 20171217
